FAERS Safety Report 24538723 (Version 4)
Quarter: 2025Q4

REPORT INFORMATION
  Report Type: Report from Study
  Country: US (occurrence: US)
  Receive Date: 20241023
  Receipt Date: 20251104
  Transmission Date: 20260118
  Serious: Yes (Hospitalization, Other)
  Sender: ABBVIE
  Company Number: US-ABBVIE-5972550

PATIENT
  Age: 54 Year
  Sex: Female

DRUGS (1)
  1. SKYRIZI [Suspect]
     Active Substance: RISANKIZUMAB-RZAA
     Indication: Crohn^s disease
     Route: 058
     Dates: start: 20240223

REACTIONS (12)
  - Cellulitis [Unknown]
  - Gastrointestinal disorder [Unknown]
  - Crohn^s disease [Unknown]
  - Coronary artery occlusion [Unknown]
  - Stoma site reaction [Unknown]
  - Hernia [Unknown]
  - Stoma site haemorrhage [Unknown]
  - Haemoglobin increased [Unknown]
  - White blood cell count increased [Unknown]
  - Dizziness [Unknown]
  - Blood magnesium decreased [Unknown]
  - Blood calcium decreased [Unknown]

NARRATIVE: CASE EVENT DATE: 20240101
